FAERS Safety Report 15778021 (Version 3)
Quarter: 2019Q1

REPORT INFORMATION
  Report Type: Report from Study
  Country: US (occurrence: US)
  Receive Date: 20181231
  Receipt Date: 20190221
  Transmission Date: 20190417
  Serious: No
  Sender: FDA-Public Use
  Company Number: US-BRISTOL-MYERS SQUIBB COMPANY-BMS-2018-119496

PATIENT
  Sex: Male

DRUGS (2)
  1. NIVOLUMAB [Suspect]
     Active Substance: NIVOLUMAB
     Indication: RENAL CELL CARCINOMA
     Dosage: UNK, Q4WK
     Route: 042
     Dates: start: 20180308
  2. YERVOY [Suspect]
     Active Substance: IPILIMUMAB
     Indication: RENAL CANCER
     Dosage: UNK UNK, Q4WK
     Route: 042

REACTIONS (4)
  - Rash pruritic [Unknown]
  - Adverse event [Unknown]
  - Fatigue [Unknown]
  - Urinary incontinence [Unknown]
